FAERS Safety Report 14237863 (Version 1)
Quarter: 2017Q4

REPORT INFORMATION
  Report Type: Spontaneous
  Country: IT (occurrence: IT)
  Receive Date: 20171130
  Receipt Date: 20171130
  Transmission Date: 20180321
  Serious: Yes (Death)
  Sender: FDA-Public Use
  Company Number: IT-JNJFOC-20171107741

PATIENT

DRUGS (2)
  1. IBUPROPHEN [Suspect]
     Active Substance: IBUPROFEN
     Indication: PRODUCT USED FOR UNKNOWN INDICATION
     Route: 065
  2. IBUPROPHEN [Suspect]
     Active Substance: IBUPROFEN
     Route: 065

REACTIONS (1)
  - Death [Fatal]
